FAERS Safety Report 15657613 (Version 2)
Quarter: 2018Q4

REPORT INFORMATION
  Report Type: Report from Study
  Country: US (occurrence: US)
  Receive Date: 20181126
  Receipt Date: 20181224
  Transmission Date: 20190205
  Serious: Yes (Other)
  Sender: FDA-Public Use
  Company Number: US-SHIRE-US201845132

PATIENT
  Age: 54 Year
  Sex: Female

DRUGS (2)
  1. GATTEX [Suspect]
     Active Substance: TEDUGLUTIDE\WATER
     Indication: SHORT-BOWEL SYNDROME
     Dosage: 0.22 ML, 1X/DAY:QD
     Route: 058
     Dates: start: 20181015
  2. GATTEX [Suspect]
     Active Substance: TEDUGLUTIDE\WATER
     Dosage: 0.3 ML, 1X/DAY:QD
     Route: 058
     Dates: start: 20181016

REACTIONS (7)
  - Influenza like illness [Unknown]
  - Flatulence [Unknown]
  - Nausea [Unknown]
  - Injection site haemorrhage [Unknown]
  - Stoma complication [Unknown]
  - Injection site bruising [Unknown]
  - Abdominal pain [Unknown]

NARRATIVE: CASE EVENT DATE: 20181113
